FAERS Safety Report 5242231-7 (Version None)
Quarter: 2007Q1

REPORT INFORMATION
  Report Type: 
  Country: None (occurrence: None)
  Receive Date: 20070215
  Receipt Date: 20070215
  Transmission Date: 20070707
  Serious: No
  Sender: FDA-Public Use
  Company Number: None

PATIENT
  Age: 40 Year
  Sex: Male
  Weight: 110.6777 kg

DRUGS (1)
  1. OLANZAPINE [Suspect]
     Dosage: 10 MG HS PO
     Route: 048

REACTIONS (1)
  - WEIGHT INCREASED [None]
